FAERS Safety Report 8370890-9 (Version None)
Quarter: 2012Q2

REPORT INFORMATION
  Report Type: 
  Country: None (occurrence: None)
  Receive Date: 20120518
  Receipt Date: 20120110
  Transmission Date: 20120825
  Serious: No
  Sender: FDA-Public Use
  Company Number: US-ASTRAZENECA-2012SE12778

PATIENT
  Age: 32 Year
  Sex: Female

DRUGS (1)
  1. PRILOSEC OTC [Suspect]
     Route: 048
     Dates: start: 20120105, end: 20120105

REACTIONS (7)
  - SWOLLEN TONGUE [None]
  - THROAT TIGHTNESS [None]
  - HYPOAESTHESIA ORAL [None]
  - LIP SWELLING [None]
  - PHARYNGEAL OEDEMA [None]
  - INAPPROPRIATE SCHEDULE OF DRUG ADMINISTRATION [None]
  - HYPERSENSITIVITY [None]
